FAERS Safety Report 9120553 (Version 1)
Quarter: 2013Q1

REPORT INFORMATION
  Report Type: Spontaneous
  Country: BR (occurrence: BR)
  Receive Date: 20130226
  Receipt Date: 20130226
  Transmission Date: 20140127
  Serious: Yes (Hospitalization, Other)
  Sender: FDA-Public Use
  Company Number: BR-AMGEN-BRACT2011069605

PATIENT
  Age: 35 Year
  Sex: Female
  Weight: 57 kg

DRUGS (8)
  1. ENBREL [Suspect]
     Indication: ANKYLOSING SPONDYLITIS
     Dosage: 50 MG, QWK
     Route: 058
     Dates: start: 20111113
  2. ENBREL [Suspect]
     Dosage: 50 MG, QWK
     Route: 058
     Dates: start: 20111013, end: 201111
  3. ISONIAZIDE [Concomitant]
     Dosage: 100 MG, TID
  4. SULFASALAZINE [Concomitant]
     Indication: ANKYLOSING SPONDYLITIS
     Dosage: 500 MG, 2 TIMES/WK
     Dates: start: 2006
  5. SULFASALAZINE [Concomitant]
     Dosage: 1000 MG, 2X/WEEK
     Dates: start: 2006
  6. OMEPRAZOLE [Concomitant]
     Dosage: UNK
  7. CYCLOBENZAPRINE HYDROCHLORIDE [Concomitant]
     Indication: PAIN
     Dosage: AS NEEDED FOR PAIN
  8. ARCOXIA [Concomitant]
     Dosage: UNK

REACTIONS (20)
  - Laryngeal inflammation [Unknown]
  - Pharyngeal inflammation [Unknown]
  - Neck pain [Unknown]
  - Pharyngeal erythema [Unknown]
  - Back pain [Unknown]
  - Feeding disorder [Unknown]
  - Nephrolithiasis [Not Recovered/Not Resolved]
  - Oropharyngeal pain [Unknown]
  - Ovarian cyst [Not Recovered/Not Resolved]
  - Arthralgia [Unknown]
  - Wrong technique in drug usage process [Unknown]
  - Oral mucosal erythema [Unknown]
  - Injection site oedema [Unknown]
  - Injection site haematoma [Unknown]
  - Injection site swelling [Unknown]
  - Injection site erythema [Unknown]
  - Chest pain [Unknown]
  - Injection site hypersensitivity [Unknown]
  - Injection site warmth [Unknown]
  - Injection site pain [Unknown]
